FAERS Safety Report 20000328 (Version 1)
Quarter: 2021Q4

REPORT INFORMATION
  Report Type: Spontaneous
  Country: CA (occurrence: CA)
  Receive Date: 20211026
  Receipt Date: 20211026
  Transmission Date: 20220303
  Serious: Yes (Hospitalization)
  Sender: FDA-Public Use
  Company Number: CA-TEVA-2021-CA-1969629

PATIENT
  Age: 61 Year
  Sex: Female
  Weight: 54 kg

DRUGS (5)
  1. CARBOPLATIN [Suspect]
     Active Substance: CARBOPLATIN
     Indication: Pancreatic neoplasm
     Route: 065
  2. ETOPOSIDE [Suspect]
     Active Substance: ETOPOSIDE
     Indication: Pancreatic neoplasm
     Route: 065
  3. DEXAMETHASONE [Concomitant]
     Active Substance: DEXAMETHASONE
  4. ENOXAPARIN [Concomitant]
     Active Substance: ENOXAPARIN
  5. FILGRASTIM [Concomitant]
     Active Substance: FILGRASTIM

REACTIONS (1)
  - Febrile neutropenia [Recovered/Resolved]
